FAERS Safety Report 8929001 (Version 2)
Quarter: 2012Q4

REPORT INFORMATION
  Report Type: 
  Country: JP (occurrence: JP)
  Receive Date: 20121127
  Receipt Date: 20121217
  Transmission Date: 20130627
  Serious: Yes (Disabling)
  Sender: FDA-Public Use
  Company Number: JP-MYLANLABS-2012S1023762

PATIENT
  Age: 66 Year
  Sex: Male

DRUGS (12)
  1. VANCOMYCIN MYLAN [Suspect]
     Indication: SEPSIS
     Route: 041
     Dates: start: 20120928, end: 20120928
  2. VANCOMYCIN MYLAN [Suspect]
     Indication: SEPSIS
     Route: 041
     Dates: start: 20120928, end: 20120928
  3. VANCOMYCIN MYLAN [Suspect]
     Indication: SEPSIS
     Route: 041
     Dates: start: 20120929, end: 20121001
  4. VANCOMYCIN MYLAN [Suspect]
     Indication: SEPSIS
     Route: 041
     Dates: start: 20121002, end: 20121007
  5. VANCOMYCIN MYLAN [Suspect]
     Indication: SEPSIS
     Route: 041
     Dates: start: 20121008, end: 20121010
  6. VANCOMYCIN MYLAN [Suspect]
     Indication: SEPSIS
     Route: 041
     Dates: start: 20121009, end: 20121010
  7. MICAFUNGIN SODIUM [Concomitant]
     Indication: SEPSIS
     Route: 041
     Dates: start: 20120928, end: 20121005
  8. VFEND [Concomitant]
     Indication: PRODUCT USED FOR UNKNOWN INDICATION
     Route: 048
     Dates: start: 20121026
  9. AMBISOME [Concomitant]
     Indication: SEPSIS
     Route: 041
     Dates: start: 20121013, end: 20121025
  10. PREDONINE [Concomitant]
     Indication: DEAFNESS
     Route: 041
     Dates: start: 20121010, end: 20121013
  11. PREDONINE [Concomitant]
     Indication: DEAFNESS
     Route: 041
     Dates: start: 20121014, end: 20121017
  12. PREDONINE [Concomitant]
     Indication: DEAFNESS
     Route: 041
     Dates: start: 20121018, end: 20121019

REACTIONS (2)
  - Mycotic endophthalmitis [Recovering/Resolving]
  - Alanine aminotransferase increased [Recovering/Resolving]
